FAERS Safety Report 14184518 (Version 2)
Quarter: 2018Q1

REPORT INFORMATION
  Report Type: Spontaneous
  Country: CN (occurrence: CN)
  Receive Date: 20171113
  Receipt Date: 20180124
  Transmission Date: 20180508
  Serious: Yes (Other)
  Sender: FDA-Public Use
  Company Number: CN-PFIZER INC-2017482277

PATIENT
  Age: 25 Year
  Sex: Male

DRUGS (6)
  1. CYTARABINE. [Suspect]
     Active Substance: CYTARABINE
     Dosage: 200 MG, 1X/DAY ON DAYS 1-7 (2ND CYCLE)
     Dates: start: 20170418
  2. CYTARABINE. [Suspect]
     Active Substance: CYTARABINE
     Dosage: 50 MG, 1X/DAY ON DAYS 1-14
     Dates: start: 20170606
  3. CYTARABINE. [Suspect]
     Active Substance: CYTARABINE
     Indication: ACUTE MYELOID LEUKAEMIA
     Dosage: 200 MG, 1X/DAY ON DAYS 1-7 (1ST CYCLE)
     Dates: start: 2017
  4. CYTARABINE. [Suspect]
     Active Substance: CYTARABINE
     Dosage: CYCLE REDUCED BY HALF (THIRD CYCLE)
     Dates: start: 20170524
  5. CYTARABINE. [Suspect]
     Active Substance: CYTARABINE
     Dosage: 200 MG, 1X/DAY ON DAYS 1-7 (4TH CYCLE)
     Dates: start: 2017
  6. ACLARUBICIN [Concomitant]
     Active Substance: ACLARUBICIN
     Indication: ACUTE MYELOID LEUKAEMIA
     Dosage: UNK, CYCLIC
     Dates: start: 20170606

REACTIONS (1)
  - Pericarditis [Recovering/Resolving]
